FAERS Safety Report 15779049 (Version 3)
Quarter: 2019Q2

REPORT INFORMATION
  Report Type: Report from Study
  Country: LB (occurrence: LB)
  Receive Date: 20190101
  Receipt Date: 20190412
  Transmission Date: 20190711
  Serious: Yes (Hospitalization)
  Sender: FDA-Public Use
  Company Number: PHHO2018LB013624

PATIENT
  Age: 72 Year
  Sex: Female
  Weight: 83 kg

DRUGS (4)
  1. LBH589 [Suspect]
     Active Substance: PANOBINOSTAT
     Indication: PLASMA CELL MYELOMA
     Dosage: 20 MG, OT
     Route: 048
     Dates: start: 20181112
  2. BORTEZOMIB. [Suspect]
     Active Substance: BORTEZOMIB
     Indication: PLASMA CELL MYELOMA
     Dosage: 3 MG, OT
     Route: 058
     Dates: start: 20181112
  3. LBH589 [Suspect]
     Active Substance: PANOBINOSTAT
     Dosage: 20 MG, OT
     Route: 048
     Dates: start: 20190103
  4. BORTEZOMIB. [Suspect]
     Active Substance: BORTEZOMIB
     Dosage: 3 MG, OT
     Route: 058
     Dates: start: 20190103

REACTIONS (3)
  - Anaemia [Recovered/Resolved]
  - Urinary tract infection [Recovered/Resolved]
  - Sepsis [Recovered/Resolved]

NARRATIVE: CASE EVENT DATE: 20181224
